FAERS Safety Report 23293185 (Version 2)
Quarter: 2024Q1

REPORT INFORMATION
  Report Type: Spontaneous
  Country: MX (occurrence: MX)
  Receive Date: 20231213
  Receipt Date: 20240118
  Transmission Date: 20240410
  Serious: Yes (Other)
  Sender: FDA-Public Use
  Company Number: MX-BAYER-2023A178648

PATIENT
  Age: 56 Year
  Sex: Female

DRUGS (1)
  1. NEXAVAR [Suspect]
     Active Substance: SORAFENIB
     Indication: Clear cell renal cell carcinoma
     Dosage: 400 MG, BID
     Route: 048
     Dates: start: 202310

REACTIONS (1)
  - Erythema multiforme [Recovered/Resolved with Sequelae]
